FAERS Safety Report 16693493 (Version 1)
Quarter: 2019Q3

REPORT INFORMATION
  Report Type: Spontaneous
  Country: GB (occurrence: GB)
  Receive Date: 20190812
  Receipt Date: 20190812
  Transmission Date: 20191004
  Serious: Yes (Death, Hospitalization, Other)
  Sender: FDA-Public Use
  Company Number: GB-ABBVIE-18S-167-2570521-00

PATIENT
  Age: 2 Month
  Sex: Male
  Weight: 4.78 kg

DRUGS (4)
  1. DIGOXIN. [Concomitant]
     Active Substance: DIGOXIN
     Indication: SUPRAVENTRICULAR TACHYCARDIA
     Route: 048
  2. PALIVIZUMAB [Suspect]
     Active Substance: PALIVIZUMAB
     Indication: HEART DISEASE CONGENITAL
     Route: 058
     Dates: start: 20181114, end: 20181114
  3. ASPIRIN. [Concomitant]
     Active Substance: ASPIRIN
     Indication: SURGICAL VASCULAR SHUNT
     Route: 048
  4. ATENOLOL. [Concomitant]
     Active Substance: ATENOLOL
     Indication: SUPRAVENTRICULAR TACHYCARDIA
     Dosage: LIQUID
     Route: 048

REACTIONS (4)
  - Cardiac disorder [Unknown]
  - Malaise [Unknown]
  - Hypoplastic left heart syndrome [Fatal]
  - Feeling abnormal [Unknown]

NARRATIVE: CASE EVENT DATE: 20181114
